FAERS Safety Report 9100163 (Version 4)
Quarter: 2013Q2

REPORT INFORMATION
  Report Type: Spontaneous
  Country: US (occurrence: US)
  Receive Date: 20130215
  Receipt Date: 20130508
  Transmission Date: 20140414
  Serious: No
  Sender: FDA-Public Use
  Company Number: US-PFIZER INC-2013057450

PATIENT
  Age: 62 Year
  Sex: Male
  Weight: 122 kg

DRUGS (2)
  1. VIAGRA [Suspect]
     Indication: ERECTILE DYSFUNCTION
     Dosage: 100 MG, AS NEEDED
     Route: 048
     Dates: start: 20130111
  2. VIAGRA [Suspect]
     Dosage: 300 MG, UNK (TOOK THREE TABLETS OF SILDENAFIL CITRATE 100MG TOGETHER)
     Route: 048

REACTIONS (2)
  - Incorrect dose administered [Unknown]
  - Drug ineffective [Unknown]
